FAERS Safety Report 17683734 (Version 1)
Quarter: 2020Q2

REPORT INFORMATION
  Report Type: Spontaneous
  Country: RU (occurrence: RU)
  Receive Date: 20200420
  Receipt Date: 20200420
  Transmission Date: 20200714
  Serious: Yes (Other)
  Sender: FDA-Public Use
  Company Number: RU-JNJFOC-20200420531

PATIENT
  Age: 29 Year
  Sex: Female

DRUGS (4)
  1. ADVANTAN [Concomitant]
     Active Substance: METHYLPREDNISOLONE ACEPONATE
     Indication: DERMATITIS EXFOLIATIVE GENERALISED
     Dosage: MORNING AND EVENING FOR UP TO 2 WEEKS
     Route: 065
  2. CETIRIZINE HYDROCHLORIDE. [Suspect]
     Active Substance: CETIRIZINE HYDROCHLORIDE
     Indication: OFF LABEL USE
  3. BELODERM                           /00008501/ [Concomitant]
     Indication: DERMATITIS EXFOLIATIVE GENERALISED
     Dosage: IN THE EVENING
     Route: 065
  4. CETIRIZINE HYDROCHLORIDE. [Suspect]
     Active Substance: CETIRIZINE HYDROCHLORIDE
     Indication: DERMATITIS EXFOLIATIVE GENERALISED
     Dosage: OFF LABEL USE FOR INDICATION. 1 DOSAGE FORM, ONCE DAILY (QD), NIGHT
     Route: 065

REACTIONS (2)
  - Off label use [Unknown]
  - Dermatitis exfoliative generalised [Unknown]
